FAERS Safety Report 8695734 (Version 2)
Quarter: 2013Q1

REPORT INFORMATION
  Report Type: Spontaneous
  Country: US (occurrence: US)
  Receive Date: 20120731
  Receipt Date: 20130301
  Transmission Date: 20140127
  Serious: Yes (Hospitalization, Other)
  Sender: FDA-Public Use
  Company Number: US-009507513-2009SP030531

PATIENT
  Sex: Female
  Weight: 68.4 kg

DRUGS (2)
  1. NUVARING [Suspect]
     Indication: PRODUCT USED FOR UNKNOWN INDICATION
     Dates: start: 200506
  2. IMITREX (SUMATRIPTAN) [Concomitant]
     Indication: MIGRAINE
     Dosage: NOTED TO HAVE TAKEN ON 15DEC2005 AND 16DEC2005
     Route: 058

REACTIONS (25)
  - Visual field defect [Not Recovered/Not Resolved]
  - Sinus bradycardia [Recovered/Resolved]
  - Hemiplegia [Not Recovered/Not Resolved]
  - Loss of consciousness [Recovered/Resolved]
  - Cerebral infarction [Unknown]
  - Carotid artery occlusion [Unknown]
  - Ankle fracture [Unknown]
  - Head injury [Unknown]
  - Concussion [Unknown]
  - Ischaemia [Unknown]
  - Human papilloma virus test positive [Unknown]
  - Weight increased [Unknown]
  - Hyperlipidaemia [Unknown]
  - Depression [Unknown]
  - Suicidal ideation [Unknown]
  - Uterine cervical squamous metaplasia [Unknown]
  - Ankle fracture [Unknown]
  - Sleep disorder [Unknown]
  - Micturition urgency [Unknown]
  - Urinary incontinence [Unknown]
  - Rectocele [Unknown]
  - Pain [Unknown]
  - Breast disorder [Unknown]
  - Diastolic dysfunction [Unknown]
  - Heart valve incompetence [Unknown]
